FAERS Safety Report 21107951 (Version 1)
Quarter: 2022Q3

REPORT INFORMATION
  Report Type: Spontaneous
  Country: US (occurrence: US)
  Receive Date: 20220720
  Receipt Date: 20220720
  Transmission Date: 20221027
  Serious: No
  Sender: FDA-Public Use
  Company Number: US-SA-SAC20220717000078

PATIENT
  Age: 30 Year
  Sex: Female
  Weight: 172.3 kg

DRUGS (10)
  1. DUPIXENT [Suspect]
     Active Substance: DUPILUMAB
     Indication: Nasal polyps
     Dosage: 300 MG, QOW
     Route: 058
     Dates: start: 20220701
  2. PROAIR HFA [Concomitant]
     Active Substance: ALBUTEROL SULFATE
  3. SINGULAIR [Concomitant]
     Active Substance: MONTELUKAST SODIUM
  4. LEXAPRO [Concomitant]
     Active Substance: ESCITALOPRAM OXALATE
  5. ZZZQUIL NIGHTTIME SLEEP-AID [Concomitant]
     Active Substance: DIPHENHYDRAMINE HYDROCHLORIDE
  6. ALLEGRA ALLERGY [Concomitant]
     Active Substance: FEXOFENADINE HYDROCHLORIDE
  7. FLONASE ALLERGY RELIEF [Concomitant]
     Active Substance: FLUTICASONE PROPIONATE
  8. ADVAIR HFA [Concomitant]
     Active Substance: FLUTICASONE PROPIONATE\SALMETEROL XINAFOATE
  9. EPINEPHRINE [Concomitant]
     Active Substance: EPINEPHRINE
  10. MODERNA COVID-19 VACCINE [Concomitant]
     Active Substance: ELASOMERAN
     Indication: Immunisation

REACTIONS (3)
  - Injection site pruritus [Recovered/Resolved]
  - Arthropod bite [Recovered/Resolved]
  - Product use in unapproved indication [Unknown]

NARRATIVE: CASE EVENT DATE: 20220701
